FAERS Safety Report 12461864 (Version 3)
Quarter: 2017Q3

REPORT INFORMATION
  Report Type: Spontaneous
  Country: FR (occurrence: FR)
  Receive Date: 20160613
  Receipt Date: 20170830
  Transmission Date: 20171127
  Serious: Yes (Death, Hospitalization, Other)
  Sender: FDA-Public Use
  Company Number: FR-GILEAD-2016-0213053

PATIENT
  Age: 56 Year
  Sex: Male
  Weight: 90 kg

DRUGS (7)
  1. INEXIUM                            /01479302/ [Concomitant]
     Active Substance: ESOMEPRAZOLE MAGNESIUM
     Dosage: 20 MGRS, QD
  2. CEFOTAXIME [Concomitant]
     Active Substance: CEFOTAXIME SODIUM
     Dosage: 1 G, QD
  3. SOVALDI [Suspect]
     Active Substance: SOFOSBUVIR
     Indication: CHRONIC HEPATITIS C
     Dosage: 400 MG, QD
     Route: 048
     Dates: start: 20160201, end: 20160313
  4. DAKLINZA [Concomitant]
     Active Substance: DACLATASVIR
     Indication: CHRONIC HEPATITIS C
     Dosage: 60 MG, QD
     Route: 048
     Dates: start: 20160201, end: 20160313
  5. PROPRANOLOL [Concomitant]
     Active Substance: PROPRANOLOL HYDROCHLORIDE
     Indication: OESOPHAGEAL VARICES HAEMORRHAGE
     Dosage: 160 MG, QD
  6. OLYSIO [Concomitant]
     Active Substance: SIMEPREVIR
     Indication: CHRONIC HEPATITIS C
     Dosage: 150 MG, QD
     Route: 048
     Dates: start: 20160201, end: 20160313
  7. RIBAVIRINE [Concomitant]
     Active Substance: RIBAVIRIN
     Indication: CHRONIC HEPATITIS C
     Dosage: 600 MG, BID
     Route: 048
     Dates: start: 20160201, end: 20160313

REACTIONS (11)
  - Mitochondrial toxicity [Fatal]
  - Cardio-respiratory arrest [Unknown]
  - Staphylococcal bacteraemia [Unknown]
  - Hepatic failure [Fatal]
  - Multiple organ dysfunction syndrome [Unknown]
  - Ascites [Not Recovered/Not Resolved]
  - Hypoxia [Unknown]
  - Pancreatitis acute [Recovered/Resolved]
  - Renal failure [Not Recovered/Not Resolved]
  - Sepsis [Fatal]
  - Metabolic acidosis [Unknown]

NARRATIVE: CASE EVENT DATE: 20160317
